FAERS Safety Report 8029786-4 (Version None)
Quarter: 2011Q4

REPORT INFORMATION
  Report Type: 
  Country: None (occurrence: None)
  Receive Date: 20111130
  Receipt Date: 20110622
  Transmission Date: 20120403
  Serious: Yes (Hospitalization, Other)
  Sender: FDA-Public Use
  Company Number: US200910005554

PATIENT
  Sex: Female
  Weight: 96.6 kg

DRUGS (16)
  1. LORTAB [Concomitant]
  2. BYETTA [Suspect]
     Dates: start: 20070914, end: 20080527
  3. LEVOTHYROXINE SODIUM [Concomitant]
  4. TRICOR [Concomitant]
  5. NORVASC [Concomitant]
  6. PROTONIX [Concomitant]
  7. GLUCOVANCE [Concomitant]
  8. ALLEGRA (FENOFENADINE HYDROCHLORIDE) [Concomitant]
  9. IBUPROFEN [Concomitant]
  10. EXENATIDE PEN, DISPOSABLE DEVICE (EXENATIDE PEN ) PEN,DISPOSABLE [Concomitant]
  11. LORAZEPAM [Concomitant]
  12. LIDODERM [Concomitant]
  13. FLEXERIL [Concomitant]
  14. SERTRALINE HYDROCHLORIDE [Concomitant]
  15. GABAPENTIN [Suspect]
  16. ASPIRIN [Concomitant]

REACTIONS (1)
  - PANCREATITIS ACUTE [None]
